FAERS Safety Report 23725766 (Version 1)
Quarter: 2024Q2

REPORT INFORMATION
  Report Type: Spontaneous
  Country: RO (occurrence: RO)
  Receive Date: 20240410
  Receipt Date: 20240410
  Transmission Date: 20240716
  Serious: Yes (Other)
  Sender: FDA-Public Use
  Company Number: RO-AMGEN-ROUSP2024050572

PATIENT
  Age: 70 Year
  Sex: Female

DRUGS (1)
  1. PROLIA [Suspect]
     Active Substance: DENOSUMAB
     Indication: Osteoporosis
     Dosage: 60 MILLIGRAM PER MILLILITER
     Route: 058
     Dates: start: 202312

REACTIONS (3)
  - Cystitis haemorrhagic [Unknown]
  - Tooth fracture [Unknown]
  - Dental caries [Unknown]

NARRATIVE: CASE EVENT DATE: 20240101
